FAERS Safety Report 5780924-3 (Version None)
Quarter: 2008Q2

REPORT INFORMATION
  Report Type: 
  Country: None (occurrence: None)
  Receive Date: 20080620
  Receipt Date: 20080609
  Transmission Date: 20081010
  Serious: Yes (Other)
  Sender: FDA-Public Use
  Company Number: CH-PFIZER INC-2008044745

PATIENT
  Sex: Male
  Weight: 70 kg

DRUGS (4)
  1. CHANTIX [Suspect]
     Indication: SMOKING CESSATION THERAPY
     Route: 048
  2. TRIOFAN [Concomitant]
     Route: 045
  3. NICOTINELL GUM [Concomitant]
     Route: 048
     Dates: start: 20080517
  4. NICORETTE [Concomitant]

REACTIONS (1)
  - SCINTILLATING SCOTOMA [None]
